FAERS Safety Report 14867921 (Version 2)
Quarter: 2018Q2

REPORT INFORMATION
  Report Type: Report from Study
  Country: US (occurrence: US)
  Receive Date: 20180509
  Receipt Date: 20180522
  Transmission Date: 20180711
  Serious: Yes (Hospitalization, Other)
  Sender: FDA-Public Use
  Company Number: US-ROCHE-2118081

PATIENT
  Sex: Male
  Weight: 118.04 kg

DRUGS (2)
  1. OCREVUS [Suspect]
     Active Substance: OCRELIZUMAB
     Indication: PROGRESSIVE MULTIPLE SCLEROSIS
     Route: 042
     Dates: start: 2017
  2. OCREVUS [Suspect]
     Active Substance: OCRELIZUMAB
     Dosage: ONGOING: UNKNOWN
     Route: 042
     Dates: start: 201801

REACTIONS (11)
  - Coagulopathy [Unknown]
  - Infection [Recovering/Resolving]
  - Pain [Unknown]
  - Renal failure [Recovering/Resolving]
  - Immunodeficiency [Recovering/Resolving]
  - Nephrolithiasis [Recovering/Resolving]
  - Therapeutic response shortened [Unknown]
  - Pulmonary thrombosis [Recovering/Resolving]
  - Sepsis [Recovering/Resolving]
  - Thrombosis [Recovering/Resolving]
  - Influenza like illness [Unknown]

NARRATIVE: CASE EVENT DATE: 2017
